FAERS Safety Report 19905515 (Version 1)
Quarter: 2021Q4

REPORT INFORMATION
  Report Type: Spontaneous
  Country: IT (occurrence: IT)
  Receive Date: 20211001
  Receipt Date: 20211001
  Transmission Date: 20220303
  Serious: Yes (Hospitalization)
  Sender: FDA-Public Use
  Company Number: IT-LUPIN PHARMACEUTICALS INC.-2021-18525

PATIENT
  Age: 13 Year
  Sex: Male

DRUGS (2)
  1. METHYLPREDNISOLONE [Suspect]
     Active Substance: METHYLPREDNISOLONE
     Indication: Henoch-Schonlein purpura
     Dosage: 1 MILLIGRAM/KILOGRAM PER DAY
     Route: 042
  2. METHYLPREDNISOLONE [Suspect]
     Active Substance: METHYLPREDNISOLONE
     Indication: Vasculitis gastrointestinal
     Dosage: 2 MILLIGRAM/KILOGRAM PER DAY
     Route: 042

REACTIONS (2)
  - Drug ineffective [Unknown]
  - Off label use [None]
